FAERS Safety Report 12075403 (Version 1)
Quarter: 2016Q1

REPORT INFORMATION
  Report Type: Spontaneous
  Country: AR (occurrence: AR)
  Receive Date: 20160213
  Receipt Date: 20160213
  Transmission Date: 20160526
  Serious: Yes (Other)
  Sender: FDA-Public Use
  Company Number: AR-AMGEN-ARGSP2016016590

PATIENT
  Age: 62 Year
  Sex: Female

DRUGS (4)
  1. DICLOFENAC [Concomitant]
     Active Substance: DICLOFENAC
     Dosage: UNK
  2. ENBREL [Suspect]
     Active Substance: ETANERCEPT
     Indication: RHEUMATOID ARTHRITIS
     Dosage: 50 MG, WEEKLY
     Route: 065
     Dates: start: 20080505
  3. METADONA                           /00068901/ [Concomitant]
     Dosage: UNK
     Dates: start: 2014
  4. AMLODIPINE [Concomitant]
     Active Substance: AMLODIPINE BESYLATE
     Dosage: UNK
     Dates: start: 201512

REACTIONS (1)
  - Ankle fracture [Recovering/Resolving]

NARRATIVE: CASE EVENT DATE: 201505
